FAERS Safety Report 7040003-4 (Version None)
Quarter: 2010Q3

REPORT INFORMATION
  Report Type: 
  Country: None (occurrence: None)
  Receive Date: 20100927
  Receipt Date: 20100915
  Transmission Date: 20110219
  Serious: Yes (Death, Hospitalization)
  Sender: FDA-Public Use
  Company Number: 2010PROUSA00043

PATIENT
  Age: 84 Year
  Sex: Male
  Weight: 62.9 kg

DRUGS (6)
  1. PROVENGE [Suspect]
     Indication: PROSTATE CANCER METASTATIC
     Dosage: 250 ML, SINGLE, INTRAVENOUS
     Route: 042
     Dates: start: 20100730, end: 20100730
  2. PROVENGE [Suspect]
     Indication: PROSTATE CANCER METASTATIC
     Dosage: 250 ML, SINGLE, INTRAVENOUS
     Route: 042
     Dates: start: 20100813, end: 20100813
  3. PROVENGE [Suspect]
  4. PREDNISONE TAB [Concomitant]
  5. PRILOSEC [Concomitant]
  6. ANTIBIOTICS [Concomitant]

REACTIONS (1)
  - SEPSIS [None]
